FAERS Safety Report 20590660 (Version 1)
Quarter: 2022Q1

REPORT INFORMATION
  Report Type: Report from Study
  Country: CN (occurrence: CN)
  Receive Date: 20220314
  Receipt Date: 20220314
  Transmission Date: 20220423
  Serious: Yes (Hospitalization)
  Sender: FDA-Public Use
  Company Number: CN-BRISTOL-MYERS SQUIBB COMPANY-BMS-2022-037778

PATIENT
  Age: 58 Year
  Sex: Male

DRUGS (1)
  1. NIVOLUMAB [Suspect]
     Active Substance: NIVOLUMAB
     Indication: Gastric cancer
     Dosage: 300 MILLIGRAM, Q3WK
     Route: 041
     Dates: start: 20210803

REACTIONS (2)
  - Liver disorder [Unknown]
  - Off label use [Unknown]
